FAERS Safety Report 9973395 (Version 1)
Quarter: 2014Q1

REPORT INFORMATION
  Report Type: Spontaneous
  Country: CM (occurrence: CM)
  Receive Date: 20140306
  Receipt Date: 20140306
  Transmission Date: 20141002
  Serious: Yes (Hospitalization)
  Sender: FDA-Public Use
  Company Number: CM-009507513-1403CMR001836

PATIENT
  Age: 41 Year
  Sex: Female
  Weight: 57 kg

DRUGS (2)
  1. MECTIZAN [Suspect]
     Indication: FILARIASIS LYMPHATIC
     Dosage: 4 DF, UNK
     Route: 048
     Dates: start: 20130710
  2. ALBENDAZOLE [Suspect]
     Indication: FILARIASIS LYMPHATIC
     Dosage: 1 DF, UNK
     Route: 048
     Dates: start: 20130710

REACTIONS (4)
  - Headache [Recovered/Resolved]
  - Vomiting [Recovered/Resolved]
  - Abdominal pain [Recovered/Resolved]
  - Abasia [Recovered/Resolved]
